FAERS Safety Report 7917776-9 (Version None)
Quarter: 2011Q4

REPORT INFORMATION
  Report Type: 
  Country: None (occurrence: None)
  Receive Date: 20111114
  Receipt Date: 20111031
  Transmission Date: 20120403
  Serious: Yes (Hospitalization)
  Sender: FDA-Public Use
  Company Number: 7092626

PATIENT
  Sex: Female

DRUGS (4)
  1. LEVOTHYROXINE SODIUM [Suspect]
     Indication: FOETAL EXPOSURE TIMING UNSPECIFIED
     Route: 064
     Dates: start: 20090310, end: 20091001
  2. MIRTAZAPINE [Suspect]
     Indication: FOETAL EXPOSURE TIMING UNSPECIFIED
     Dosage: 15 MG (15 MG, 1 IN 1 D)
     Route: 064
     Dates: start: 20090310, end: 20090901
  3. LODOZ 10 MG/6.25 MG (BISELECT /01166101/) (COATED TABLET) (HYDROCHLORO [Suspect]
     Indication: FOETAL EXPOSURE TIMING UNSPECIFIED
     Dosage: 1 DF (1 DF, 1 IN 1 D)
     Route: 064
     Dates: start: 20090310, end: 20091001
  4. NICARDIPINE HCL [Suspect]
     Indication: FOETAL EXPOSURE TIMING UNSPECIFIED
     Dosage: 2 DF (1 DF, 2 IN 1 D)
     Route: 064
     Dates: start: 20090310, end: 20091001

REACTIONS (7)
  - FOETAL GROWTH RESTRICTION [None]
  - CAESAREAN SECTION [None]
  - FOETAL HEART RATE ABNORMAL [None]
  - JAUNDICE NEONATAL [None]
  - RECTAL HAEMORRHAGE [None]
  - MATERNAL DRUGS AFFECTING FOETUS [None]
  - PREMATURE BABY [None]
